FAERS Safety Report 14472455 (Version 2)
Quarter: 2018Q2

REPORT INFORMATION
  Report Type: Spontaneous
  Country: DE (occurrence: DE)
  Receive Date: 20180201
  Receipt Date: 20180518
  Transmission Date: 20180711
  Serious: Yes (Death)
  Sender: FDA-Public Use
  Company Number: DE-TEVA-2018-DE-850682

PATIENT
  Age: 64 Year
  Sex: Female
  Weight: 51 kg

DRUGS (3)
  1. REVLIMID [Suspect]
     Active Substance: LENALIDOMIDE
     Indication: PLASMA CELL MYELOMA
     Route: 048
     Dates: start: 20170529, end: 20170612
  2. DEXAMETHASONE. [Suspect]
     Active Substance: DEXAMETHASONE
     Indication: PLASMA CELL MYELOMA
     Dosage: 2.8571 MILLIGRAM
     Route: 048
     Dates: start: 20170529, end: 20170612
  3. DARATUMUMAB [Suspect]
     Active Substance: DARATUMUMAB
     Indication: PLASMA CELL MYELOMA
     Dosage: 16 MILLIGRAM/SQ. METER
     Route: 041
     Dates: start: 20161212, end: 20170529

REACTIONS (5)
  - Pneumocystis jirovecii pneumonia [Fatal]
  - Multiple organ dysfunction syndrome [Fatal]
  - Hepatitis B reactivation [Fatal]
  - Acute hepatic failure [Fatal]
  - Neutropenia [Fatal]

NARRATIVE: CASE EVENT DATE: 20170611
